FAERS Safety Report 5603974-6 (Version None)
Quarter: 2008Q1

REPORT INFORMATION
  Report Type: 
  Country: None (occurrence: None)
  Receive Date: 20080124
  Receipt Date: 20080124
  Transmission Date: 20080703
  Serious: Yes (Death)
  Sender: FDA-Public Use
  Company Number: None

PATIENT
  Age: 4 Month
  Sex: Male
  Weight: 7.2576 kg

DRUGS (2)
  1. INFANT TYLENOL [Suspect]
     Dosage: X1 ORAL
     Dates: start: 20070913
  2. ULTRA BRIGHT BEGINNING INFANT FORMULA [Suspect]
     Dosage: DAILY ORAL
     Route: 048

REACTIONS (4)
  - BLOOD DISORDER [None]
  - CELL DEATH [None]
  - EYE HAEMORRHAGE [None]
  - MOUTH HAEMORRHAGE [None]
